FAERS Safety Report 12713048 (Version 2)
Quarter: 2016Q4

REPORT INFORMATION
  Report Type: Report from Study
  Country: US (occurrence: US)
  Receive Date: 20160902
  Receipt Date: 20161223
  Transmission Date: 20170207
  Serious: Yes (Death, Hospitalization, Other)
  Sender: FDA-Public Use
  Company Number: US-MYLANLABS-2016M1037350

PATIENT

DRUGS (4)
  1. CYTARABINE. [Suspect]
     Active Substance: CYTARABINE
     Indication: ACUTE MYELOID LEUKAEMIA
     Dosage: 3520 MG, CYCLIC (EVERY 22 DAYS X 5)
     Route: 042
     Dates: start: 20160716, end: 20160720
  2. IDARUBICIN [Suspect]
     Active Substance: IDARUBICIN
     Indication: ACUTE MYELOID LEUKAEMIA
     Dosage: 18 MG, CYCLIC (EVERY 22 DAYS X 3)
     Route: 042
     Dates: start: 20160716, end: 20160718
  3. FLUDARABINE [Suspect]
     Active Substance: FLUDARABINE PHOSPHATE
     Indication: ACUTE MYELOID LEUKAEMIA
     Dosage: 53 MG, CYCLIC (EVERY 22 DAYS X5)
     Route: 042
     Dates: start: 20160716, end: 20160720
  4. GRANULOCYTE COLONY STIMULATING FACTOR [Suspect]
     Active Substance: GRANULOCYTE COLONY-STIMULATING FACTOR NOS
     Indication: ACUTE MYELOID LEUKAEMIA
     Dosage: 480 MG, QD X5
     Route: 058
     Dates: start: 20160715, end: 20160719

REACTIONS (5)
  - Febrile neutropenia [Not Recovered/Not Resolved]
  - Hypoxia [Not Recovered/Not Resolved]
  - Bacteraemia [Not Recovered/Not Resolved]
  - Pneumonia [Not Recovered/Not Resolved]
  - Pulmonary haemorrhage [Fatal]

NARRATIVE: CASE EVENT DATE: 20160731
